FAERS Safety Report 7914426-2 (Version None)
Quarter: 2011Q4

REPORT INFORMATION
  Report Type: 
  Country: None (occurrence: None)
  Receive Date: 20111110
  Receipt Date: 20111026
  Transmission Date: 20120403
  Serious: Yes (Other)
  Sender: FDA-Public Use
  Company Number: VAL_00643_2011

PATIENT
  Age: 30 Year
  Sex: Male

DRUGS (1)
  1. ROCALTROL [Suspect]
     Indication: HYPOCALCAEMIA
     Dosage: (DF)
     Dates: start: 20050101

REACTIONS (1)
  - INFERTILITY [None]
